FAERS Safety Report 7791931-3 (Version None)
Quarter: 2011Q4

REPORT INFORMATION
  Report Type: 
  Country: None (occurrence: None)
  Receive Date: 20111003
  Receipt Date: 20110928
  Transmission Date: 20120403
  Serious: Yes (Other)
  Sender: FDA-Public Use
  Company Number: US-PFIZER INC-2011127576

PATIENT
  Sex: Female

DRUGS (7)
  1. FLEXERIL [Concomitant]
     Indication: MUSCLE RELAXANT THERAPY
     Dosage: UNK
     Dates: start: 20040101, end: 20090101
  2. IBUPROFEN [Concomitant]
     Indication: ANALGESIC THERAPY
     Dosage: UNK
     Dates: start: 20030101, end: 20100101
  3. ACETAMINOPHEN AND HYDROCODONE BITARTRATE [Concomitant]
     Indication: ANALGESIC THERAPY
     Dosage: UNK
     Dates: start: 20040101, end: 20090101
  4. CHANTIX [Suspect]
     Indication: SMOKING CESSATION THERAPY
     Dosage: STARTING MONTH PACK
     Dates: start: 20080501, end: 20080601
  5. AZITHROMYCIN [Concomitant]
     Indication: ANTIBIOTIC THERAPY
     Dosage: UNK
     Dates: start: 20070101, end: 20090101
  6. CLINDAMYCIN [Concomitant]
     Indication: ANTIBIOTIC THERAPY
     Dosage: UNK
     Dates: start: 20040101, end: 20090101
  7. ACETAMINOPHEN AND HYDROCODONE BITARTRATE [Concomitant]
     Indication: INJURY

REACTIONS (3)
  - ANXIETY [None]
  - SUICIDAL IDEATION [None]
  - DEPRESSION [None]
